FAERS Safety Report 9468194 (Version 2)
Quarter: 2014Q4

REPORT INFORMATION
  Report Type: Spontaneous
  Country: DK (occurrence: DK)
  Receive Date: 20130821
  Receipt Date: 20141219
  Transmission Date: 20150529
  Serious: Yes (Hospitalization, Congenital Anomaly)
  Sender: FDA-Public Use
  Company Number: DK-ASTRAZENECA-2013SE63145

PATIENT
  Sex: Male
  Weight: 3.4 kg

DRUGS (6)
  1. NORITREN [Suspect]
     Active Substance: NORTRIPTYLINE HYDROCHLORIDE
     Indication: DEPRESSION
     Route: 064
     Dates: start: 20040701
  2. SEROQUEL [Suspect]
     Active Substance: QUETIAPINE FUMARATE
     Indication: DEPRESSION
     Route: 064
     Dates: start: 20130101, end: 20130502
  3. ELTROXIN [Suspect]
     Active Substance: LEVOTHYROXINE
     Indication: HYPOTHYROIDIC GOITRE
     Route: 064
     Dates: start: 200610
  4. SEROQUEL [Suspect]
     Active Substance: QUETIAPINE FUMARATE
     Indication: PANIC DISORDER
     Route: 064
     Dates: start: 20130101, end: 20130502
  5. LINDYNETTE [Suspect]
     Active Substance: ETHINYL ESTRADIOL\GESTODENE
     Indication: CONTRACEPTION
     Dosage: 75 + 30 MICROGRAMS, 1 TABLET DAILY
     Route: 064
     Dates: end: 20130430
  6. LAMICTAL [Suspect]
     Active Substance: LAMOTRIGINE
     Indication: DEPRESSION
     Dosage: 200+300 MG
     Route: 064
     Dates: start: 200407

REACTIONS (5)
  - Hypotension [Unknown]
  - Congenital scoliosis [Not Recovered/Not Resolved]
  - Anomaly of external ear congenital [Not Recovered/Not Resolved]
  - Respiratory disorder [Unknown]
  - Epispadias [Not Recovered/Not Resolved]
